FAERS Safety Report 8276139 (Version 2)
Quarter: 2012Q4

REPORT INFORMATION
  Report Type: Report from Study
  Country: GB (occurrence: GB)
  Receive Date: 20111206
  Receipt Date: 20121212
  Transmission Date: 20130627
  Serious: Yes (Death, Hospitalization)
  Sender: FDA-Public Use
  Company Number: GB-CELGENEUS-167-21880-10041151

PATIENT
  Age: 59 Year
  Sex: Female

DRUGS (3)
  1. REVLIMID [Suspect]
     Indication: MYELOMA
     Route: 048
     Dates: start: 20100315, end: 20100404
  2. REVLIMID [Suspect]
     Dosage: 25 Milligram
     Route: 048
     Dates: start: 20100315
  3. DEXAMETHASONE [Suspect]
     Indication: MYELOMA
     Dosage: Total monthly dose
     Route: 048

REACTIONS (2)
  - Renal failure [Recovering/Resolving]
  - Death [Fatal]
